FAERS Safety Report 4267216-9 (Version None)
Quarter: 2004Q1

REPORT INFORMATION
  Report Type: 
  Country: None (occurrence: None)
  Receive Date: 20040107
  Receipt Date: 20031222
  Transmission Date: 20041129
  Serious: Yes (Death)
  Sender: FDA-Public Use
  Company Number: 2003JP007514

PATIENT
  Age: 49 Year
  Sex: Male
  Weight: 52 kg

DRUGS (15)
  1. PROGRAF [Suspect]
     Indication: RENAL TRANSPLANT
  2. SIMULECT [Suspect]
  3. CELLCEPT [Concomitant]
  4. PREDNISOLONE [Concomitant]
  5. LIPOVAS ^BANYU^ (SIMVASTATIN) [Concomitant]
  6. ASPIRIN [Concomitant]
  7. GLAKAY (MENATETRENONE) [Concomitant]
  8. SALOBEL [Concomitant]
  9. FAMOTIDINE [Concomitant]
  10. AMOBAN (ZOPICLONE) [Concomitant]
  11. ALOSENN (TARAXACUM OFFICINALE, ACHILLEA, RUBIA ROOT TINCTURE, SENNA LE [Concomitant]
  12. DIFLUCAN [Concomitant]
  13. SULFAMETHOXAZOLE + TRIMETHOPRIM [Concomitant]
  14. MARZULENE S (LEVOGLUTAMIDE, SODIUM GUALENATE) [Concomitant]
  15. CALTAN [Concomitant]

REACTIONS (11)
  - ACUTE PULMONARY OEDEMA [None]
  - ACUTE RESPIRATORY DISTRESS SYNDROME [None]
  - ANAEMIA [None]
  - BLOOD GASES ABNORMAL [None]
  - BLOOD PRESSURE DECREASED [None]
  - CONDITION AGGRAVATED [None]
  - FLUID RETENTION [None]
  - HAEMODIALYSIS [None]
  - PYREXIA [None]
  - RENAL IMPAIRMENT [None]
  - THERAPY NON-RESPONDER [None]
